FAERS Safety Report 8614232-X (Version None)
Quarter: 2012Q3

REPORT INFORMATION
  Report Type: 
  Country: None (occurrence: None)
  Receive Date: 20120823
  Receipt Date: 20120813
  Transmission Date: 20120928
  Serious: Yes (Hospitalization)
  Sender: FDA-Public Use
  Company Number: FR-009507513-1208FRA007165

PATIENT

DRUGS (4)
  1. JANUMET [Suspect]
     Indication: TYPE 2 DIABETES MELLITUS
     Dosage: 1 DF, BID
     Route: 048
     Dates: start: 20120607, end: 20120707
  2. AMLODIPINE BESYLATE [Concomitant]
     Route: 048
  3. IRBESARTAN AND HYDROCHLOROTHIAZIDE [Suspect]
     Dosage: 1 DF, QD
     Route: 048
     Dates: end: 20120706
  4. ZOCOR [Concomitant]
     Route: 048

REACTIONS (4)
  - CONSTIPATION [None]
  - HYPONATRAEMIA [None]
  - ABDOMINAL PAIN UPPER [None]
  - HEADACHE [None]
